FAERS Safety Report 4771106-2 (Version None)
Quarter: 2005Q3

REPORT INFORMATION
  Report Type: 
  Country: None (occurrence: None)
  Receive Date: 20050914
  Receipt Date: 20050902
  Transmission Date: 20060218
  Serious: Yes (Other)
  Sender: FDA-Public Use
  Company Number: 2005124368

PATIENT
  Age: 59 Year
  Sex: Male
  Weight: 109.7705 kg

DRUGS (5)
  1. NORVASC [Suspect]
     Indication: HYPERTENSION
     Dosage: 2.5 MG (2.5 MG, 1 IN 1 D)
     Dates: start: 20050409, end: 20050401
  2. IMITREX [Concomitant]
  3. ATENOLOL [Concomitant]
  4. HYDROCHLOROTHIAZIDE [Concomitant]
  5. ASPIRIN [Concomitant]

REACTIONS (8)
  - ASTHENIA [None]
  - BUTTOCK PAIN [None]
  - DYSSTASIA [None]
  - FATIGUE [None]
  - HERNIA [None]
  - PAIN [None]
  - PAIN IN EXTREMITY [None]
  - VARICOSE VEIN [None]
